FAERS Safety Report 19398732 (Version 2)
Quarter: 2021Q3

REPORT INFORMATION
  Report Type: Spontaneous
  Country: GR (occurrence: GR)
  Receive Date: 20210610
  Receipt Date: 20210708
  Transmission Date: 20211014
  Serious: Yes (Death, Other)
  Sender: FDA-Public Use
  Company Number: GR-TEVA-2021-GR-1920900

PATIENT
  Age: 77 Year
  Sex: Male

DRUGS (2)
  1. MABTHERA [Suspect]
     Active Substance: RITUXIMAB
     Indication: PRODUCT USED FOR UNKNOWN INDICATION
     Dosage: (D1, RECEIVED SIX CYCLES)
     Route: 065
     Dates: start: 20200429
  2. BENDAMUSTINE HYDROCHLORIDE. [Suspect]
     Active Substance: BENDAMUSTINE HYDROCHLORIDE
     Indication: PRODUCT USED FOR UNKNOWN INDICATION
     Dosage: (D1?D2 EVERY 28 DAYS)
     Route: 042
     Dates: start: 20200429

REACTIONS (2)
  - Bone marrow failure [Unknown]
  - COVID-19 [Fatal]

NARRATIVE: CASE EVENT DATE: 20201217
